FAERS Safety Report 9173966 (Version 1)
Quarter: 2013Q1

REPORT INFORMATION
  Report Type: Spontaneous
  Country: US (occurrence: US)
  Receive Date: 20130320
  Receipt Date: 20130320
  Transmission Date: 20140127
  Serious: Yes (Other)
  Sender: FDA-Public Use
  Company Number: CHPA2012US009542

PATIENT
  Age: 72 Year
  Sex: Female

DRUGS (4)
  1. EXCEDRIN UNKNOWN [Suspect]
     Indication: ARTHRITIS
     Dosage: 3 DF, Q6H
     Route: 048
  2. EXCEDRIN UNKNOWN [Suspect]
     Indication: PAIN
     Dosage: 4 DF, Q6H
     Route: 048
  3. EXCEDRIN UNKNOWN [Suspect]
     Indication: SINUS HEADACHE
  4. ANTIHYPERTENSIVES [Concomitant]
     Indication: HYPERTENSION

REACTIONS (6)
  - Intracranial aneurysm [Recovered/Resolved]
  - Benign ovarian tumour [Recovered/Resolved]
  - Dysphagia [Not Recovered/Not Resolved]
  - Incorrect drug administration duration [Unknown]
  - Wrong technique in drug usage process [Unknown]
  - Underdose [Unknown]
